FAERS Safety Report 9367794 (Version 2)
Quarter: 2013Q3

REPORT INFORMATION
  Report Type: Report from Study
  Country: US (occurrence: US)
  Receive Date: 20130625
  Receipt Date: 20130812
  Transmission Date: 20140515
  Serious: Yes (Hospitalization)
  Sender: FDA-Public Use
  Company Number: US-GILEAD-2013-0077892

PATIENT
  Age: 49 Year
  Sex: Female

DRUGS (5)
  1. AMBRISENTAN [Suspect]
     Indication: PULMONARY ARTERIAL HYPERTENSION
     Dosage: 10 MG, QD
     Route: 048
     Dates: start: 20130515, end: 201306
  2. AMBRISENTAN [Suspect]
     Dosage: UNK
     Route: 048
     Dates: start: 201306
  3. TADALAFIL [Suspect]
     Indication: PULMONARY ARTERIAL HYPERTENSION
     Dosage: 40 MG, QD
     Route: 048
     Dates: start: 20130515, end: 201306
  4. TADALAFIL [Suspect]
     Dosage: UNK
     Dates: start: 201306
  5. TADALAFIL [Suspect]
     Dosage: UNK
     Dates: start: 20120612, end: 20130514

REACTIONS (1)
  - Syncope [Recovering/Resolving]
